FAERS Safety Report 22886404 (Version 3)
Quarter: 2023Q4

REPORT INFORMATION
  Report Type: Report from Study
  Country: ES (occurrence: ES)
  Receive Date: 20230831
  Receipt Date: 20231017
  Transmission Date: 20240110
  Serious: Yes (Other)
  Sender: FDA-Public Use
  Company Number: ES-ABBVIE-5362018

PATIENT
  Sex: Male
  Weight: 85 kg

DRUGS (3)
  1. CARBIDOPA\LEVODOPA [Suspect]
     Active Substance: CARBIDOPA\LEVODOPA
     Indication: Parkinson^s disease
     Route: 050
     Dates: start: 20191223, end: 202308
  2. CARBIDOPA\LEVODOPA [Suspect]
     Active Substance: CARBIDOPA\LEVODOPA
     Dosage: CONTINUOUS DOSE INCREASED BY 0.2 ML/H, LEAVING IT AT 3.5 ML
     Route: 050
     Dates: start: 202308, end: 202308
  3. CARBIDOPA\LEVODOPA [Suspect]
     Active Substance: CARBIDOPA\LEVODOPA
     Route: 050
     Dates: start: 202308, end: 20230828

REACTIONS (14)
  - Craniocerebral injury [Recovering/Resolving]
  - Device breakage [Unknown]
  - General physical health deterioration [Unknown]
  - Drug ineffective [Unknown]
  - Balance disorder [Unknown]
  - Fall [Not Recovered/Not Resolved]
  - Device issue [Unknown]
  - Mobility decreased [Unknown]
  - Freezing phenomenon [Not Recovered/Not Resolved]
  - Investigation abnormal [Unknown]
  - Asthenia [Not Recovered/Not Resolved]
  - Craniocerebral injury [Unknown]
  - Fall [Recovering/Resolving]
  - Fall [Unknown]

NARRATIVE: CASE EVENT DATE: 20230101
